FAERS Safety Report 10458839 (Version 1)
Quarter: 2014Q3

REPORT INFORMATION
  Report Type: Other
  Country: GB (occurrence: GB)
  Receive Date: 20140917
  Receipt Date: 20140917
  Transmission Date: 20150326
  Serious: Yes (Other)
  Sender: FDA-Public Use
  Company Number: GB-MYLAN-2014M1003684

PATIENT

DRUGS (6)
  1. RANITIDINE [Concomitant]
     Active Substance: RANITIDINE\RANITIDINE HYDROCHLORIDE
     Dosage: UNK
     Route: 065
  2. RISEDRONATE [Suspect]
     Active Substance: RISEDRONATE SODIUM
     Indication: BONE MARROW DISORDER
     Dosage: 35 MG, UNK
     Dates: start: 2013
  3. POSACONAZOLE [Concomitant]
     Active Substance: POSACONAZOLE
     Dosage: UNK
     Route: 065
  4. PREDNISOLONE. [Concomitant]
     Active Substance: PREDNISOLONE
     Dosage: UNK
     Route: 065
  5. DIFFLAM [Concomitant]
     Active Substance: BENZYDAMINE HYDROCHLORIDE
     Dosage: UNK
     Route: 065
  6. LEVOTHYROXINE [Concomitant]
     Active Substance: LEVOTHYROXINE
     Dosage: UNK
     Route: 065

REACTIONS (5)
  - Jaw disorder [Unknown]
  - Somnolence [Unknown]
  - Uveitis [Recovered/Resolved]
  - Device failure [Unknown]
  - Tooth disorder [Unknown]

NARRATIVE: CASE EVENT DATE: 2014
